FAERS Safety Report 5204029-5 (Version None)
Quarter: 2007Q1

REPORT INFORMATION
  Report Type: 
  Country: None (occurrence: None)
  Receive Date: 20070110
  Receipt Date: 20051107
  Transmission Date: 20070707
  Serious: No
  Sender: FDA-Public Use
  Company Number: US-BRISTOL-MYERS SQUIBB COMPANY-13150305

PATIENT
  Age: 7 Year
  Sex: Male

DRUGS (1)
  1. ABILIFY [Suspect]
     Indication: EMOTIONAL DISORDER
     Dosage: RECHALLENGED AT 2.5 MG
     Route: 048
     Dates: start: 20050909, end: 20050913

REACTIONS (2)
  - GINGIVAL BLEEDING [None]
  - ORAL CANDIDIASIS [None]
